FAERS Safety Report 23052493 (Version 2)
Quarter: 2023Q4

REPORT INFORMATION
  Report Type: Report from Study
  Country: NL (occurrence: NL)
  Receive Date: 20231011
  Receipt Date: 20231130
  Transmission Date: 20240109
  Serious: Yes (Other)
  Sender: FDA-Public Use
  Company Number: NL-ABBVIE-5399777

PATIENT
  Age: 61 Year
  Sex: Male

DRUGS (3)
  1. VENETOCLAX [Suspect]
     Active Substance: VENETOCLAX
     Indication: Acute myeloid leukaemia
     Dosage: 200 MILLIGRAM?DURATION TEXT: DAY 2
     Route: 048
     Dates: start: 20230829, end: 20230829
  2. VENETOCLAX [Suspect]
     Active Substance: VENETOCLAX
     Indication: Acute myeloid leukaemia
     Dosage: 400 MILLIGRAM?DURATION TEXT: DAYS 3 TO 28?END DATE : 2023
     Route: 048
     Dates: start: 20230830
  3. VENETOCLAX [Suspect]
     Active Substance: VENETOCLAX
     Indication: Acute myeloid leukaemia
     Dosage: 100 MILLIGRAM?DURATION TEXT: DAY 1
     Route: 048
     Dates: start: 20230828, end: 20230828

REACTIONS (4)
  - Pulmonary mucormycosis [Unknown]
  - Off label use [Not Recovered/Not Resolved]
  - Neutropenia [Unknown]
  - Leukaemia [Not Recovered/Not Resolved]

NARRATIVE: CASE EVENT DATE: 20230828
